FAERS Safety Report 24238372 (Version 3)
Quarter: 2024Q4

REPORT INFORMATION
  Report Type: Spontaneous
  Country: FR (occurrence: FR)
  Receive Date: 20240822
  Receipt Date: 20241211
  Transmission Date: 20250115
  Serious: Yes (Other)
  Sender: MYLAN
  Company Number: FR-SANDOZ-SDZ2024FR069951

PATIENT
  Age: 58 Year
  Sex: Male

DRUGS (7)
  1. TACROLIMUS [Suspect]
     Active Substance: TACROLIMUS
     Indication: Renal transplant
     Dosage: UNK
     Route: 065
  2. AMLODIPINE [Suspect]
     Active Substance: AMLODIPINE BESYLATE
     Indication: Hypertension
     Dosage: 5 MILLIGRAM, QD
     Route: 065
     Dates: start: 202302
  3. METFORMIN HYDROCHLORIDE [Concomitant]
     Active Substance: METFORMIN HYDROCHLORIDE
     Indication: Type 1 diabetes mellitus
     Dosage: UNK
     Route: 065
  4. AMLODIPINE [Concomitant]
     Active Substance: AMLODIPINE BESYLATE
     Indication: Hypertension
     Dosage: UNK
     Route: 065
  5. MYCOPHENOLATE MOFETIL [Concomitant]
     Active Substance: MYCOPHENOLATE MOFETIL
     Indication: Prophylaxis against transplant rejection
     Dosage: 500 MILLIGRAM
     Route: 065
  6. MYCOPHENOLATE MOFETIL [Concomitant]
     Active Substance: MYCOPHENOLATE MOFETIL
     Indication: Renal transplant
  7. AMOXICILLIN [Concomitant]
     Active Substance: AMOXICILLIN
     Indication: Renal transplant
     Dosage: 500 MILLIGRAM
     Route: 065

REACTIONS (4)
  - Gingival hypertrophy [Unknown]
  - Type 1 diabetes mellitus [Unknown]
  - Periodontitis [Recovered/Resolved]
  - Hypertension [Unknown]

NARRATIVE: CASE EVENT DATE: 20240301
